FAERS Safety Report 10312068 (Version 1)
Quarter: 2014Q3

REPORT INFORMATION
  Report Type: Spontaneous
  Country: BR (occurrence: BR)
  Receive Date: 20140717
  Receipt Date: 20140717
  Transmission Date: 20150326
  Serious: Yes (Hospitalization)
  Sender: FDA-Public Use
  Company Number: BR-PFIZER INC-2014196635

PATIENT
  Age: 61 Year
  Sex: Male
  Weight: 89 kg

DRUGS (4)
  1. RIVOTRIL [Concomitant]
     Active Substance: CLONAZEPAM
     Indication: RELAXATION THERAPY
     Dosage: TWICE DAILY (CONTINUOUS USE)
     Dates: start: 2013
  2. GLIFAGE XR [Concomitant]
     Active Substance: METFORMIN HYDROCHLORIDE
     Indication: DIABETES MELLITUS
     Dosage: 1000 MG (TWO TABLETS OF 500MG), DAILY
     Dates: start: 2012
  3. ARADOIS [Concomitant]
     Active Substance: LOSARTAN POTASSIUM
     Indication: BLOOD PRESSURE
     Dosage: TWICE DAILY (CONTINOUS USE)
     Dates: start: 2013
  4. ZOLOFT [Suspect]
     Active Substance: SERTRALINE HYDROCHLORIDE
     Dosage: ONCE DAILY
     Route: 048
     Dates: start: 20130117, end: 20130417

REACTIONS (9)
  - Dizziness [Not Recovered/Not Resolved]
  - Depression [Not Recovered/Not Resolved]
  - Dry throat [Unknown]
  - Gastrointestinal neoplasm [Unknown]
  - Neoplasm recurrence [Unknown]
  - Tremor [Not Recovered/Not Resolved]
  - Immune system disorder [Not Recovered/Not Resolved]
  - Productive cough [Unknown]
  - Asthenia [Not Recovered/Not Resolved]

NARRATIVE: CASE EVENT DATE: 20140526
